FAERS Safety Report 7412187-7 (Version None)
Quarter: 2011Q2

REPORT INFORMATION
  Report Type: 
  Country: None (occurrence: None)
  Receive Date: 20110408
  Receipt Date: 20110408
  Transmission Date: 20111010
  Serious: Yes (Other)
  Sender: FDA-Public Use
  Company Number: None

PATIENT
  Age: 55 Year
  Sex: Male
  Weight: 71.2147 kg

DRUGS (1)
  1. CLONIDINE HCL [Suspect]
     Indication: HYPERTENSION
     Dosage: 1 MG TWICE DAILY PO
     Route: 048
     Dates: start: 20110220, end: 20110328

REACTIONS (5)
  - HEADACHE [None]
  - INSOMNIA [None]
  - NECK PAIN [None]
  - CHEST PAIN [None]
  - GAIT DISTURBANCE [None]
